FAERS Safety Report 21230641 (Version 1)
Quarter: 2022Q3

REPORT INFORMATION
  Report Type: Spontaneous
  Country: FR (occurrence: FR)
  Receive Date: 20220818
  Receipt Date: 20220818
  Transmission Date: 20221027
  Serious: Yes (Hospitalization)
  Sender: FDA-Public Use
  Company Number: FR-AUROBINDO-AUR-APL-2022-025172

PATIENT
  Age: 56 Year
  Sex: Male
  Weight: 75.6 kg

DRUGS (22)
  1. URSODIOL [Suspect]
     Active Substance: URSODIOL
     Indication: Product used for unknown indication
     Dosage: 250 MILLIGRAM,(EVERY 12 HRS) TWO TIMES A DAY, UNIT DOSE: 500 MG, FREQUENCY TIME-1 DAY, THERAPY END D
     Dates: start: 20211220
  2. FUROSEMIDE [Suspect]
     Active Substance: FUROSEMIDE
     Indication: Product used for unknown indication
     Dosage: 40 MILLIGRAM DAILY; 40 MILLIGRAM, ONCE A DAY, THERAPY END DATE: NOT ASKED
     Dates: start: 20211220
  3. ACETAMINOPHEN [Suspect]
     Active Substance: ACETAMINOPHEN
     Indication: Product used for unknown indication
     Dosage: THERAPY END DATE: NOT ASKED
     Route: 065
     Dates: start: 2021
  4. FILGRASTIM [Suspect]
     Active Substance: FILGRASTIM
     Indication: Neutropenia
     Dosage: 30 MILLION INTERNATIONAL UNIT, THERAPY END DATE: NOT ASKED
     Dates: start: 20211220
  5. BACTRIM [Suspect]
     Active Substance: SULFAMETHOXAZOLE\TRIMETHOPRIM
     Indication: Opportunistic infection prophylaxis
     Dosage: THERAPY END DATE: NOT ASKED
     Dates: start: 20211221
  6. CALCIUM CARBONATE\CHOLECALCIFEROL [Suspect]
     Active Substance: CALCIUM CARBONATE\CHOLECALCIFEROL
     Indication: Vitamin supplementation
     Dosage: 2 DOSAGE FORMS DAILY; 2 DOSAGE FORM, ONCE A DAY, THERAPY END DATE: NOT ASKED
     Dates: start: 20220125
  7. ESOMEPRAZOLE [Suspect]
     Active Substance: ESOMEPRAZOLE
     Indication: Prophylaxis against gastrointestinal ulcer
     Dosage: 40 MILLIGRAM DAILY; 40 MILLIGRAM, ONCE A DAY, THERAPY END DATE: NOT ASKED
     Dates: start: 20220125
  8. FUNGIZONE [Suspect]
     Active Substance: AMPHOTERICIN B
     Indication: Product used for unknown indication
     Dosage: THERAPY END DATE: NOT ASKED
     Dates: start: 20211220
  9. ARANESP [Suspect]
     Active Substance: DARBEPOETIN ALFA
     Indication: Anaemia
     Dosage: 300 MICROGRAM, EVERY WEEK, THERAPY END DATE: NOT ASKED
     Dates: start: 20220125
  10. VALACYCLOVIR HYDROCHLORIDE [Suspect]
     Active Substance: VALACYCLOVIR HYDROCHLORIDE
     Indication: Antiviral prophylaxis
     Dosage: 500 MILLIGRAM, (EVERY 12 HRS)TWO TIMES A DAY, UNIT DOSE: 1000 MG, FREQUENCY TIME-1 DAY, THERAPY END
     Dates: start: 2021
  11. ELTROMBOPAG OLAMINE [Suspect]
     Active Substance: ELTROMBOPAG OLAMINE
     Indication: Thrombocytopenia
     Dosage: 225 MILLIGRAM DAILY; 225 MILLIGRAM, ONCE A DAY, THERAPY END DATE: NOT ASKED
     Dates: start: 20220122
  12. NOXAFIL [Suspect]
     Active Substance: POSACONAZOLE
     Indication: Antifungal prophylaxis
     Dosage: 300 MILLIGRAM DAILY; 300 MILLIGRAM, ONCE A DAY, THERAPY END DATE: NOT ASKED
     Dates: start: 2021
  13. CALCIUM CARBONATE [Suspect]
     Active Substance: CALCIUM CARBONATE
     Indication: Vitamin supplementation
     Dosage: 2 DOSAGE FORMS DAILY; 2 DOSAGE FORM, ONCE A DAY, THERAPY END DATE: NOT ASKED
     Dates: start: 20220125
  14. PREDNISONE [Suspect]
     Active Substance: PREDNISONE
     Indication: Prophylaxis against transplant rejection
     Dosage: 30 MILLIGRAM DAILY; 30 MILLIGRAM, ONCE A DAY, THERAPY END DATE: NOT ASKED
     Dates: start: 20211229
  15. AMPHOTERICIN B [Suspect]
     Active Substance: AMPHOTERICIN B
     Indication: Product used for unknown indication
     Dosage: THERAPY END DATE: NOT ASKED
     Dates: start: 20211204
  16. PREVYMIS [Suspect]
     Active Substance: LETERMOVIR
     Indication: Antiviral prophylaxis
     Dosage: 480 MILLIGRAM DAILY; FORM STRENGTH:  480 MG, 480 MILLIGRAM, ONCE A DAY, THERAPY START DATE: NOT ASKE
     Dates: start: 20211220
  17. AMLODIPINE BESYLATE [Suspect]
     Active Substance: AMLODIPINE BESYLATE
     Indication: Hypertension
     Dosage: 5 MILLIGRAM DAILY; 5 MILLIGRAM, ONCE A DAY, THERAPY START DATE: NOT ASKED
     Dates: start: 20220125
  18. CELLCEPT [Suspect]
     Active Substance: MYCOPHENOLATE MOFETIL
     Indication: Prophylaxis against transplant rejection
     Dosage: 500 MILLIGRAM, TWO TIMES A DAY, UNIT DOSE: 1000 MG, FREQUENCY TIME-1 DAY, DURATION-99 DAYS
     Dates: start: 20220125, end: 20220503
  19. LEUCOVORIN CALCIUM [Suspect]
     Active Substance: LEUCOVORIN CALCIUM
     Indication: Haematotoxicity
     Dosage: 525 MILLIGRAM DAILY; 525 MILLIGRAM, ONCE A DAY, THERAPY START DATE: NOT ASKED
     Dates: start: 20220125
  20. SALICYLIC ACID [Concomitant]
     Active Substance: SALICYLIC ACID
     Indication: Product used for unknown indication
  21. CYCLOPHOSPHAMIDE [Concomitant]
     Active Substance: CYCLOPHOSPHAMIDE
     Indication: Product used for unknown indication
  22. FLUDARABINE [Concomitant]
     Active Substance: FLUDARABINE PHOSPHATE
     Indication: Product used for unknown indication

REACTIONS (1)
  - Condition aggravated [Not Recovered/Not Resolved]

NARRATIVE: CASE EVENT DATE: 20220401
